FAERS Safety Report 10522366 (Version 2)
Quarter: 2014Q4

REPORT INFORMATION
  Report Type: Report from Study
  Country: US (occurrence: US)
  Receive Date: 20141016
  Receipt Date: 20141016
  Transmission Date: 20150528
  Serious: Yes (Hospitalization)
  Sender: FDA-Public Use
  Company Number: US-ACTELION-A-NJ2013-87933

PATIENT
  Age: 47 Year
  Sex: Female

DRUGS (9)
  1. COUMADIN [Concomitant]
     Active Substance: WARFARIN SODIUM
  2. LASIX [Concomitant]
     Active Substance: FUROSEMIDE
     Dosage: 80 MG, UNK
  3. LASIX [Concomitant]
     Active Substance: FUROSEMIDE
     Dosage: 40 MG, UNK
  4. LASIX [Concomitant]
     Active Substance: FUROSEMIDE
     Dosage: 40 MG, UNK
  5. VELETRI [Suspect]
     Active Substance: EPOPROSTENOL
     Indication: COR PULMONALE CHRONIC
     Dosage: 6 NG/KG, PER MIN
     Route: 042
     Dates: start: 20130809
  6. ADCIRCA [Concomitant]
     Active Substance: TADALAFIL
  7. VELETRI [Suspect]
     Active Substance: EPOPROSTENOL
     Dosage: 8 NG/KG, PER MIN
     Route: 042
  8. SILDENAFIL. [Concomitant]
     Active Substance: SILDENAFIL
  9. TRACLEER [Suspect]
     Active Substance: BOSENTAN\BOSENTAN MONOHYDRATE
     Indication: COR PULMONALE CHRONIC
     Dosage: UNK
     Route: 048

REACTIONS (8)
  - Nausea [Unknown]
  - Therapy change [Unknown]
  - Headache [Unknown]
  - Diarrhoea [Unknown]
  - Trismus [Unknown]
  - Pain in jaw [Unknown]
  - Peripheral swelling [Unknown]
  - Oedema [Unknown]
